FAERS Safety Report 5841767-5 (Version None)
Quarter: 2008Q3

REPORT INFORMATION
  Report Type: 
  Country: None (occurrence: None)
  Receive Date: 20080811
  Receipt Date: 20080811
  Transmission Date: 20090109
  Serious: No
  Sender: FDA-Public Use
  Company Number: None

PATIENT
  Age: 27 Year
  Sex: Female
  Weight: 79.8331 kg

DRUGS (1)
  1. MIRENA [Suspect]
     Indication: CONTRACEPTION
     Dosage: 1 VAG
     Dates: start: 20060721

REACTIONS (25)
  - ABDOMINAL DISTENSION [None]
  - ABDOMINAL PAIN [None]
  - ACNE [None]
  - AMENORRHOEA [None]
  - ARTHRALGIA [None]
  - BREAST DISORDER [None]
  - BREAST TENDERNESS [None]
  - CHEST PAIN [None]
  - DIZZINESS [None]
  - ENURESIS [None]
  - EPISTAXIS [None]
  - FATIGUE [None]
  - FEELING ABNORMAL [None]
  - FURUNCLE [None]
  - GASTROOESOPHAGEAL REFLUX DISEASE [None]
  - HYPERTRICHOSIS [None]
  - MIGRAINE [None]
  - MUSCLE TWITCHING [None]
  - MUSCULOSKELETAL STIFFNESS [None]
  - NAUSEA [None]
  - ORAL DISORDER [None]
  - POLLAKIURIA [None]
  - RASH [None]
  - VAGINAL DISCHARGE [None]
  - WEIGHT LOSS POOR [None]
